FAERS Safety Report 24125518 (Version 3)
Quarter: 2024Q4

REPORT INFORMATION
  Report Type: Spontaneous
  Country: RO (occurrence: RO)
  Receive Date: 20240723
  Receipt Date: 20241002
  Transmission Date: 20250114
  Serious: Yes (Hospitalization, Other)
  Sender: ACCORD
  Company Number: RO-Accord-436457

PATIENT
  Age: 71 Year
  Sex: Female

DRUGS (15)
  1. DOCETAXEL [Suspect]
     Active Substance: DOCETAXEL
     Indication: Breast cancer stage II
     Dosage: 3 CYCLES; 150MG, 150MG -21 DAYS AFTER 1^ST DOSE, 150MG - 42 DAYS AFTER 1^ST DOSE
     Dates: start: 202206, end: 2022
  2. FLUOROURACIL [Concomitant]
     Active Substance: FLUOROURACIL
     Indication: Breast cancer stage II
     Dosage: 600 MG/M2 DAYS 1 AND 8
     Dates: start: 202206
  3. CYCLOPHOSPHAMIDE [Concomitant]
     Active Substance: CYCLOPHOSPHAMIDE
     Indication: Breast cancer stage II
     Dates: start: 202206
  4. EPIRUBICIN [Concomitant]
     Active Substance: EPIRUBICIN
     Indication: Breast cancer stage II
     Dosage: 60 MG-90 MG/M2, EVERY THREE WEEKS
     Dates: start: 202206
  5. ROSUVASTATIN [Concomitant]
     Active Substance: ROSUVASTATIN
     Indication: Dyslipidaemia
     Dates: start: 202206
  6. INDAPAMIDE [Concomitant]
     Active Substance: INDAPAMIDE
     Indication: Hypertension
  7. RAMIPRIL [Concomitant]
     Active Substance: RAMIPRIL
     Indication: Hypertension
  8. DOCETAXEL [Suspect]
     Active Substance: DOCETAXEL
     Indication: Hormone receptor positive breast cancer
     Dosage: 3 CYCLES, (75 MG/M2 , EVERY THREE WEEKS)
     Dates: start: 202206
  9. DOCETAXEL [Suspect]
     Active Substance: DOCETAXEL
     Indication: Hormone receptor positive HER2 negative breast cancer
     Dosage: 3 CYCLES, (75 MG/M2 , EVERY THREE WEEKS)
     Dates: start: 202206
  10. FLUOROURACIL [Concomitant]
     Active Substance: FLUOROURACIL
     Indication: Hormone receptor positive HER2 negative breast cancer
     Dosage: 600 MG/M2 DAYS 1 AND 8
     Dates: start: 202206
  11. FLUOROURACIL [Concomitant]
     Active Substance: FLUOROURACIL
     Indication: Hormone receptor positive breast cancer
     Dosage: 600 MG/M2 DAYS 1 AND 8
     Dates: start: 202206
  12. CYCLOPHOSPHAMIDE [Concomitant]
     Active Substance: CYCLOPHOSPHAMIDE
     Indication: Hormone receptor positive breast cancer
     Dates: start: 202206
  13. CYCLOPHOSPHAMIDE [Concomitant]
     Active Substance: CYCLOPHOSPHAMIDE
     Indication: Hormone receptor positive HER2 negative breast cancer
     Dates: start: 202206
  14. EPIRUBICIN [Concomitant]
     Active Substance: EPIRUBICIN
     Indication: Hormone receptor positive breast cancer
     Dosage: 60 MG-90 MG/M2, EVERY THREE WEEKS
     Dates: start: 202206
  15. EPIRUBICIN [Concomitant]
     Active Substance: EPIRUBICIN
     Indication: Hormone receptor positive HER2 negative breast cancer
     Dosage: 60 MG-90 MG/M2, EVERY THREE WEEKS
     Dates: start: 202206

REACTIONS (6)
  - Deep vein thrombosis [Recovered/Resolved]
  - Coronary artery stenosis [Recovered/Resolved]
  - Dyspnoea exertional [Unknown]
  - Condition aggravated [Recovered/Resolved]
  - Angina unstable [Recovered/Resolved]
  - Arteriosclerosis [Recovered/Resolved]

NARRATIVE: CASE EVENT DATE: 20220101
